FAERS Safety Report 8266214-8 (Version None)
Quarter: 2012Q1

REPORT INFORMATION
  Report Type: 
  Country: None (occurrence: None)
  Receive Date: 20120327
  Receipt Date: 20091006
  Transmission Date: 20120608
  Serious: Yes (Death)
  Sender: FDA-Public Use
  Company Number: PHEH2009US11774

PATIENT
  Age: 73 Year
  Sex: Male

DRUGS (2)
  1. GLEEVEC [Suspect]
     Indication: LUNG NEOPLASM MALIGNANT
     Dosage: UNK
  2. GLEEVEC [Suspect]
     Indication: RHABDOMYOSARCOMA
     Dosage: UNK

REACTIONS (1)
  - NEOPLASM PROGRESSION [None]
